FAERS Safety Report 8404938-X (Version None)
Quarter: 2012Q2

REPORT INFORMATION
  Report Type: 
  Country: None (occurrence: None)
  Receive Date: 20120601
  Receipt Date: 20120516
  Transmission Date: 20120825
  Serious: No
  Sender: FDA-Public Use
  Company Number: US-ASTRAZENECA-2012SE29988

PATIENT
  Age: 76 Year
  Sex: Female

DRUGS (8)
  1. OMEPRAZOLE [Suspect]
     Route: 048
  2. LASIX [Concomitant]
  3. MAXIDEX [Concomitant]
  4. ZOLOFT [Concomitant]
  5. ATIVAN [Concomitant]
  6. CELEBREX [Concomitant]
  7. FLEXERIL [Concomitant]
  8. SYNTHROID [Concomitant]

REACTIONS (2)
  - DRUG NAME CONFUSION [None]
  - GASTROOESOPHAGEAL REFLUX DISEASE [None]
